FAERS Safety Report 19084495 (Version 1)
Quarter: 2021Q2

REPORT INFORMATION
  Report Type: Spontaneous
  Country: TR (occurrence: TR)
  Receive Date: 20210401
  Receipt Date: 20210401
  Transmission Date: 20210717
  Serious: Yes (Other)
  Sender: FDA-Public Use
  Company Number: TR-BIOMARINAP-TR-2021-135746

PATIENT
  Age: 20 Year
  Sex: Female

DRUGS (1)
  1. VIMIZIM [Suspect]
     Active Substance: ELOSULFASE ALFA
     Indication: MUCOPOLYSACCHARIDOSIS IV
     Dosage: 2 MILLIGRAM/KILOGRAM, QW
     Route: 042

REACTIONS (9)
  - Aortic valve incompetence [Unknown]
  - Myelomalacia [Unknown]
  - Cervical cord compression [Unknown]
  - Otitis media [Unknown]
  - Spinal cord compression [Unknown]
  - Kyphosis [Unknown]
  - General physical health deterioration [Unknown]
  - Hydrocephalus [Unknown]
  - Nervous system disorder [Unknown]
